FAERS Safety Report 20393600 (Version 1)
Quarter: 2022Q1

REPORT INFORMATION
  Report Type: Spontaneous
  Country: HU (occurrence: HU)
  Receive Date: 20220128
  Receipt Date: 20220128
  Transmission Date: 20220423
  Serious: Yes (Other)
  Sender: FDA-Public Use
  Company Number: HU-BoehringerIngelheim-2022-BI-109137

PATIENT
  Age: 58 Year
  Sex: Male

DRUGS (2)
  1. NINTEDANIB [Suspect]
     Active Substance: NINTEDANIB
     Indication: Lung adenocarcinoma stage IV
     Dates: start: 20200130, end: 20201125
  2. DOCETAXEL [Concomitant]
     Active Substance: DOCETAXEL
     Indication: Lung adenocarcinoma stage IV
     Dates: start: 20200130, end: 20201125

REACTIONS (3)
  - Metastases to central nervous system [Not Recovered/Not Resolved]
  - Malignant neoplasm progression [Unknown]
  - Malignant neoplasm progression [Unknown]

NARRATIVE: CASE EVENT DATE: 20200701
